FAERS Safety Report 7005351-2 (Version None)
Quarter: 2010Q3

REPORT INFORMATION
  Report Type: 
  Country: None (occurrence: None)
  Receive Date: 20100921
  Receipt Date: 20100914
  Transmission Date: 20110219
  Serious: Yes (Other)
  Sender: FDA-Public Use
  Company Number: US-BAYER-201033945NA

PATIENT
  Age: 44 Year
  Sex: Female

DRUGS (1)
  1. MIRENA [Suspect]
     Indication: CONTRACEPTION
     Dosage: FREQUENCY: CONTINUOUS
     Route: 015
     Dates: start: 20100101

REACTIONS (4)
  - DEVICE EXPULSION [None]
  - MALAISE [None]
  - SMEAR CERVIX ABNORMAL [None]
  - VAGINAL HAEMORRHAGE [None]
